FAERS Safety Report 8973794 (Version 1)
Quarter: 2012Q4

REPORT INFORMATION
  Report Type: 
  Country: US (occurrence: US)
  Receive Date: 20121218
  Receipt Date: 20121218
  Transmission Date: 20130627
  Serious: Yes (Other)
  Sender: FDA-Public Use
  Company Number: US-BRISTOL-MYERS SQUIBB COMPANY-16414781

PATIENT
  Age: 48 Year
  Sex: Female
  Weight: 117 kg

DRUGS (6)
  1. ABILIFY [Suspect]
     Indication: MOOD SWINGS
  2. SERTRALINE HCL [Suspect]
     Indication: BIPOLAR DISORDER
     Dosage: restarted dose:200mg/D
  3. LITHIUM [Suspect]
     Indication: MOOD SWINGS
  4. TRAMADOL [Suspect]
  5. ASPIRIN [Concomitant]
  6. LEVOTHYROXINE [Concomitant]
     Indication: THYROID DISORDER

REACTIONS (6)
  - Cerebrovascular accident [Recovered/Resolved]
  - Suicidal ideation [Unknown]
  - Depression [Unknown]
  - Weight increased [Not Recovered/Not Resolved]
  - Blood pressure increased [Unknown]
  - Insomnia [Unknown]
